FAERS Safety Report 4752116-8 (Version None)
Quarter: 2005Q3

REPORT INFORMATION
  Report Type: 
  Country: None (occurrence: None)
  Receive Date: 20050825
  Receipt Date: 20050817
  Transmission Date: 20060218
  Serious: Yes (Other)
  Sender: FDA-Public Use
  Company Number: US-JNJFOC-20050804507

PATIENT
  Sex: Female
  Weight: 63.5 kg

DRUGS (7)
  1. REMICADE [Suspect]
     Route: 042
  2. REMICADE [Suspect]
     Indication: RHEUMATOID ARTHRITIS
     Route: 042
  3. METHOTREXATE [Concomitant]
  4. BEXTRA [Concomitant]
  5. THYROID TAB [Concomitant]
  6. FOLIC ACID [Concomitant]
  7. PREVACID [Concomitant]

REACTIONS (5)
  - ABDOMINAL PAIN UPPER [None]
  - DIARRHOEA [None]
  - DYSPNOEA [None]
  - GALLBLADDER OPERATION [None]
  - VOMITING [None]
